FAERS Safety Report 7249120-7 (Version None)
Quarter: 2011Q1

REPORT INFORMATION
  Report Type: 
  Country: None (occurrence: None)
  Receive Date: 20110128
  Receipt Date: 20101124
  Transmission Date: 20110831
  Serious: Yes (Other)
  Sender: FDA-Public Use
  Company Number: BE-BAYER-2010-001157

PATIENT
  Sex: Male

DRUGS (2)
  1. MOXIFLOXACIN HCL [Suspect]
     Indication: BRONCHITIS
  2. MOXIFLOXACIN HCL [Suspect]
     Indication: TRACHEITIS
     Dosage: DAILY DOSE 400 MG
     Route: 048

REACTIONS (2)
  - MYALGIA [None]
  - RHABDOMYOLYSIS [None]
